FAERS Safety Report 7094709-1 (Version None)
Quarter: 2010Q4

REPORT INFORMATION
  Report Type: 
  Country: None (occurrence: None)
  Receive Date: 20101110
  Receipt Date: 20090302
  Transmission Date: 20110411
  Serious: No
  Sender: FDA-Public Use
  Company Number: US-KINGPHARMUSA00001-K200900222

PATIENT
  Sex: Female

DRUGS (5)
  1. LEVOXYL [Suspect]
     Indication: AUTOIMMUNE THYROIDITIS
     Dosage: 112 MCG, QD
     Route: 048
     Dates: start: 20081101
  2. LEVOXYL [Suspect]
     Indication: HYPOTHYROIDISM
  3. LIPITOR [Concomitant]
     Dosage: UNK
     Route: 048
  4. CARTIA XT [Concomitant]
     Dosage: UNK
     Route: 048
  5. PREVACID [Concomitant]
     Dosage: UNK
     Route: 048

REACTIONS (1)
  - HAIR COLOUR CHANGES [None]
